FAERS Safety Report 4331664-9 (Version None)
Quarter: 2004Q2

REPORT INFORMATION
  Report Type: 
  Country: None (occurrence: None)
  Receive Date: 20040405
  Receipt Date: 20031218
  Transmission Date: 20050107
  Serious: Yes (Hospitalization)
  Sender: FDA-Public Use
  Company Number: FR-BRISTOL-MYERS SQUIBB COMPANY-12460325

PATIENT
  Age: 52 Year
  Sex: Female

DRUGS (3)
  1. CISPLATIN [Suspect]
     Indication: NON-SMALL CELL LUNG CANCER
     Dosage: FIRST INFUSION OF STUDY MEDICATION 17-FEB-2003. DISCONTINUED ON 31-MAR-2003.
     Route: 042
     Dates: start: 20030310, end: 20030310
  2. VINORELBINE TARTRATE [Suspect]
     Indication: NON-SMALL CELL LUNG CANCER
     Dosage: FIRST INFUSION: 17-FEB-03.  DISCONTINUED FROM STUDY ON 31-MAR-03. REC'D ANOTHER CHEMOTHERAPY
     Route: 042
     Dates: start: 20030522, end: 20030522
  3. CARBOPLATIN [Concomitant]

REACTIONS (2)
  - PHLEBOTHROMBOSIS [None]
  - THROMBOCYTOPENIA [None]
